FAERS Safety Report 8299258-0 (Version None)
Quarter: 2012Q2

REPORT INFORMATION
  Report Type: 
  Country: None (occurrence: None)
  Receive Date: 20120419
  Receipt Date: 20120409
  Transmission Date: 20120825
  Serious: Yes (Other)
  Sender: FDA-Public Use
  Company Number: CA-JNJFOC-20101204163

PATIENT
  Sex: Female
  Weight: 96 kg

DRUGS (3)
  1. REMICADE [Suspect]
     Dosage: DISCONTINUED DUE TO LACK OF EFFECT
     Route: 042
     Dates: start: 20110101, end: 20111121
  2. REMICADE [Suspect]
     Indication: RHEUMATOID ARTHRITIS
     Dosage: STOPPED IN SPRING 2011 DUE TO COLON CANCER DIAGNOSIS
     Route: 042
     Dates: start: 20060913, end: 20110101
  3. METHOTREXATE [Concomitant]
     Route: 058

REACTIONS (2)
  - DRUG INEFFECTIVE [None]
  - COLON CANCER [None]
